FAERS Safety Report 6294639-9 (Version None)
Quarter: 2009Q3

REPORT INFORMATION
  Report Type: 
  Country: None (occurrence: None)
  Receive Date: 20090731
  Receipt Date: 20090731
  Transmission Date: 20100115
  Serious: Yes (Other)
  Sender: FDA-Public Use
  Company Number: None

PATIENT
  Age: 49 Year
  Sex: Male
  Weight: 90.7194 kg

DRUGS (4)
  1. ZICAM COLD REMEDY GEL SWABS [Suspect]
     Dosage: PER DIRECTIONS WHEN SICK NASAL
     Route: 045
     Dates: start: 20060101, end: 20090630
  2. ZICAM NON DRIP LIQUID NASAL GEL [Suspect]
     Dosage: PER DIRECTIONS WHEN SICK NASAL
     Route: 045
     Dates: start: 20060101, end: 20090630
  3. ZICAM COLD REMEDY ORAL MIST [Suspect]
     Dosage: PER DIRECTIONS WHEN SICK PO
     Route: 048
     Dates: start: 20060101, end: 20090630
  4. SEASONAL ALLERGY RELIEF [Suspect]
     Dosage: PER DIRECTIONS WHEN SICK PO
     Route: 048
     Dates: start: 20060101, end: 20090630

REACTIONS (2)
  - AGEUSIA [None]
  - ANOSMIA [None]
